FAERS Safety Report 5314220-5 (Version None)
Quarter: 2007Q2

REPORT INFORMATION
  Report Type: 
  Country: None (occurrence: None)
  Receive Date: 20070426
  Receipt Date: 20070411
  Transmission Date: 20071010
  Serious: Yes (Hospitalization)
  Sender: FDA-Public Use
  Company Number: B0467004A

PATIENT
  Age: 24 Year
  Sex: Male

DRUGS (6)
  1. ABACAVIR SULFATE [Suspect]
     Indication: HIV INFECTION
  2. LAMIVUDINE [Suspect]
     Indication: DRUG USE FOR UNKNOWN INDICATION
  3. LOPINAVIR + RITONAVIR (FORMULATION UNKNOWN) (LOPINAVIR + RITONAVIR ) [Suspect]
     Indication: DRUG USE FOR UNKNOWN INDICATION
  4. CO-TRIMOXAZOLE [Concomitant]
  5. AZITHROMYCIN [Concomitant]
  6. PREDNISONE TAB [Concomitant]

REACTIONS (7)
  - ABDOMINAL PAIN [None]
  - ALANINE AMINOTRANSFERASE INCREASED [None]
  - ANOREXIA [None]
  - IMMUNE RECONSTITUTION SYNDROME [None]
  - STRONGYLOIDIASIS [None]
  - VOMITING [None]
  - WEIGHT DECREASED [None]
